FAERS Safety Report 20727615 (Version 1)
Quarter: 2022Q2

REPORT INFORMATION
  Report Type: Other
  Country: US (occurrence: None)
  Receive Date: 20220419
  Receipt Date: 20220419
  Transmission Date: 20220721
  Serious: No
  Sender: FDA-Public Use
  Company Number: US-ROCHE-3020818

PATIENT
  Age: 64 Year
  Sex: Female

DRUGS (2)
  1. AVASTIN [Suspect]
     Active Substance: BEVACIZUMAB
     Indication: Macular oedema
     Dosage: 1.25 MG/0.05ML
     Route: 050
  2. TRIESENCE [Concomitant]
     Active Substance: TRIAMCINOLONE ACETONIDE
     Dosage: 4.0 MG/ 0.10 ML

REACTIONS (3)
  - Off label use [Unknown]
  - Off label use [Unknown]
  - No adverse event [Unknown]
